FAERS Safety Report 18408376 (Version 2)
Quarter: 2020Q4

REPORT INFORMATION
  Report Type: Spontaneous
  Country: AR (occurrence: AR)
  Receive Date: 20201021
  Receipt Date: 20201120
  Transmission Date: 20210114
  Serious: Yes (Disabling, Other)
  Sender: FDA-Public Use
  Company Number: AR-AMGEN-ARGSP2020169482

PATIENT
  Age: 56 Year
  Sex: Female

DRUGS (2)
  1. ENBREL [Suspect]
     Active Substance: ETANERCEPT
     Dosage: STRETCHED IT/ NOT DOING ONCE A WEEK
     Route: 065
     Dates: start: 202010
  2. ENBREL [Suspect]
     Active Substance: ETANERCEPT
     Indication: RHEUMATOID ARTHRITIS
     Dosage: 50 MILLIGRAM, QWK
     Route: 065
     Dates: start: 20130606

REACTIONS (5)
  - Prescription drug used without a prescription [Unknown]
  - Hypertension [Not Recovered/Not Resolved]
  - Joint injury [Not Recovered/Not Resolved]
  - Intentional product misuse [Unknown]
  - Diabetes mellitus [Not Recovered/Not Resolved]

NARRATIVE: CASE EVENT DATE: 202010
